FAERS Safety Report 6114471-6 (Version None)
Quarter: 2009Q1

REPORT INFORMATION
  Report Type: 
  Country: None (occurrence: None)
  Receive Date: 20090313
  Receipt Date: 20090212
  Transmission Date: 20090719
  Serious: No
  Sender: FDA-Public Use
  Company Number: US-BAYER-200910466BCC

PATIENT
  Age: 70 Year
  Sex: Female
  Weight: 59 kg

DRUGS (6)
  1. ALEVE [Suspect]
     Indication: ARTHRITIS
     Dates: start: 20040101
  2. METOPROLOL TARTRATE [Concomitant]
  3. PRAVACHOL [Concomitant]
  4. MAGNESIUM SULFATE [Concomitant]
  5. DETROL [Concomitant]
  6. ASCORBIC ACID [Concomitant]

REACTIONS (1)
  - ABDOMINAL DISCOMFORT [None]
